FAERS Safety Report 10177304 (Version 1)
Quarter: 2014Q2

REPORT INFORMATION
  Report Type: Spontaneous
  Country: DE (occurrence: DE)
  Receive Date: 20140516
  Receipt Date: 20140516
  Transmission Date: 20141212
  Serious: Yes (Other)
  Sender: FDA-Public Use
  Company Number: DE-GLAXOSMITHKLINE-D0083948A

PATIENT
  Sex: Male

DRUGS (13)
  1. REQUIP-MODUTAB [Suspect]
     Dosage: 6MG TWICE PER DAY
     Route: 048
  2. MADOPAR [Suspect]
     Dosage: 125MG PER DAY
     Route: 048
  3. STALEVO [Suspect]
     Dosage: 325MG TWICE PER DAY
     Route: 048
  4. STALEVO [Suspect]
     Dosage: 293.25MG THREE TIMES PER DAY
     Route: 048
  5. RIVOTRIL [Suspect]
     Dosage: 1MG PER DAY
     Route: 048
  6. LEVODOPA/CARBIDOPA [Suspect]
     Dosage: 125MG PER DAY
     Route: 048
  7. DOMPERIDON [Suspect]
     Dosage: 10MG THREE TIMES PER DAY
     Route: 048
  8. MACROGOL [Suspect]
     Route: 048
  9. ARCOXIA [Suspect]
     Dosage: 120MG PER DAY
     Route: 048
  10. NOVAMINSULFON [Suspect]
     Dosage: 500MG FOUR TIMES PER DAY
     Route: 048
  11. IBUPROFEN [Suspect]
     Dosage: 600MG THREE TIMES PER DAY
     Route: 048
  12. PANTOPRAZOL [Suspect]
     Dosage: 40MG PER DAY
     Route: 048
  13. IRON TABLET [Suspect]
     Route: 048

REACTIONS (8)
  - Urinary retention [Unknown]
  - Renal impairment [Unknown]
  - Benign prostatic hyperplasia [Unknown]
  - Urinary incontinence [Unknown]
  - Urinary tract disorder [Unknown]
  - Diaphragmatic hernia [Unknown]
  - Anaemia [Unknown]
  - Nightmare [Unknown]
